FAERS Safety Report 5528164-7 (Version None)
Quarter: 2007Q4

REPORT INFORMATION
  Report Type: 
  Country: None (occurrence: None)
  Receive Date: 20071128
  Receipt Date: 20071119
  Transmission Date: 20080405
  Serious: Yes (Other)
  Sender: FDA-Public Use
  Company Number: BR-ASTRAZENECA-2007UW26893

PATIENT
  Age: 59 Year
  Sex: Female
  Weight: 70 kg

DRUGS (1)
  1. ARIMIDEX [Suspect]
     Indication: METASTASES TO BONE
     Route: 048
     Dates: start: 20040101, end: 20070501

REACTIONS (1)
  - TUMOUR MARKER INCREASED [None]
